FAERS Safety Report 19389421 (Version 1)
Quarter: 2021Q2

REPORT INFORMATION
  Report Type: Spontaneous
  Country: US (occurrence: US)
  Receive Date: 20210608
  Receipt Date: 20210608
  Transmission Date: 20210717
  Serious: Yes (Other)
  Sender: FDA-Public Use
  Company Number: US-COLLEGIUM PHARMACEUTICAL, INC.-2021CGM00593

PATIENT
  Age: 68 Year
  Sex: Female

DRUGS (11)
  1. ESCITALOPRAM OXALATE. [Concomitant]
     Active Substance: ESCITALOPRAM OXALATE
  2. DULOXETINE. [Concomitant]
     Active Substance: DULOXETINE
  3. TIZANIDINE. [Concomitant]
     Active Substance: TIZANIDINE
     Dosage: UNK, AS NEEDED
  4. XTAMPZA ER [Suspect]
     Active Substance: OXYCODONE
     Indication: BACK PAIN
     Dosage: 18 MG, 2X/DAY
     Route: 048
     Dates: start: 202006, end: 2021
  5. FUROSEMIDE. [Concomitant]
     Active Substance: FUROSEMIDE
  6. TORSEMIDE. [Concomitant]
     Active Substance: TORSEMIDE
  7. XTAMPZA ER [Suspect]
     Active Substance: OXYCODONE
     Indication: PAIN
  8. ALLOPURINOL. [Concomitant]
     Active Substance: ALLOPURINOL
  9. POTASSIUM CHLORIDE ER [Concomitant]
     Active Substance: POTASSIUM CHLORIDE
  10. AMLODIPINE BESYLATE. [Concomitant]
     Active Substance: AMLODIPINE BESYLATE
  11. NARCAN [Concomitant]
     Active Substance: NALOXONE HYDROCHLORIDE
     Dosage: UNK, AS NEEDED

REACTIONS (3)
  - Mental status changes [Recovered/Resolved]
  - Overdose [Recovered/Resolved]
  - Stress [Unknown]

NARRATIVE: CASE EVENT DATE: 2021
